FAERS Safety Report 10521270 (Version 4)
Quarter: 2015Q1

REPORT INFORMATION
  Report Type: Spontaneous
  Country: US (occurrence: US)
  Receive Date: 20141016
  Receipt Date: 20150123
  Transmission Date: 20150720
  Serious: No
  Sender: FDA-Public Use
  Company Number: US-009507513-1410USA003725

PATIENT
  Age: 34 Year
  Sex: Female
  Weight: 61.22 kg

DRUGS (1)
  1. IMPLANON [Suspect]
     Active Substance: ETONOGESTREL
     Indication: CONTRACEPTION
     Dosage: UNK
     Route: 059
     Dates: start: 20111006

REACTIONS (7)
  - Device difficult to use [Recovered/Resolved]
  - Discomfort [Recovered/Resolved]
  - Implant site fibrosis [Unknown]
  - Medical device complication [Recovered/Resolved]
  - Complication of device removal [Recovered/Resolved]
  - Surgery [Recovered/Resolved]
  - Device dislocation [Recovered/Resolved]

NARRATIVE: CASE EVENT DATE: 20141008
